FAERS Safety Report 9308511 (Version 8)
Quarter: 2014Q2

REPORT INFORMATION
  Report Type: Spontaneous
  Country: MT (occurrence: MT)
  Receive Date: 20130524
  Receipt Date: 20140502
  Transmission Date: 20141212
  Serious: Yes (Disabling, Other)
  Sender: FDA-Public Use
  Company Number: PHHY2013MT050839

PATIENT
  Sex: Male

DRUGS (4)
  1. GLIVEC [Suspect]
     Indication: GASTROINTESTINAL STROMAL TUMOUR
     Dosage: 100 MG, TID
     Route: 048
     Dates: start: 2007
  2. GLIVEC [Suspect]
     Dosage: 400 MG, QD
     Route: 048
  3. GLIVEC [Suspect]
     Dosage: 800 MG, (100MG 8 TABLET AT ONCE)
     Route: 048
     Dates: start: 20130701
  4. GLIVEC [Suspect]
     Dosage: UNK UKN, UNK
     Route: 048
     Dates: end: 201403

REACTIONS (8)
  - Metastases to spine [Not Recovered/Not Resolved]
  - Staphylococcus test positive [Recovered/Resolved]
  - Neoplasm [Unknown]
  - Back pain [Recovering/Resolving]
  - Vomiting [Recovered/Resolved]
  - Orbital oedema [Recovering/Resolving]
  - Drug administration error [Recovered/Resolved]
  - Insomnia [Unknown]
